FAERS Safety Report 7730722-6 (Version None)
Quarter: 2011Q3

REPORT INFORMATION
  Report Type: 
  Country: None (occurrence: None)
  Receive Date: 20110906
  Receipt Date: 20110822
  Transmission Date: 20111222
  Serious: Yes (Hospitalization, Other)
  Sender: FDA-Public Use
  Company Number: JP-GLAXOSMITHKLINE-B0690766A

PATIENT
  Age: 83 Year
  Sex: Male

DRUGS (1)
  1. VALTREX [Suspect]
     Indication: HERPES ZOSTER
     Route: 048

REACTIONS (11)
  - ENCEPHALOPATHY [None]
  - GAIT DISTURBANCE [None]
  - EYE MOVEMENT DISORDER [None]
  - DYSARTHRIA [None]
  - COORDINATION ABNORMAL [None]
  - BLOOD CREATININE ABNORMAL [None]
  - SPEECH DISORDER [None]
  - RENAL FAILURE [None]
  - DYSLALIA [None]
  - OLIGURIA [None]
  - HYPOREFLEXIA [None]
